FAERS Safety Report 8099156-1 (Version None)
Quarter: 2012Q1

REPORT INFORMATION
  Report Type: 
  Country: None (occurrence: None)
  Receive Date: 20120126
  Receipt Date: 20120113
  Transmission Date: 20120608
  Serious: Yes (Other)
  Sender: FDA-Public Use
  Company Number: 1000027338

PATIENT
  Age: 55 Year
  Sex: Male

DRUGS (4)
  1. ROFLUMILAST (ROFLUMILAST) (500 MICROGRAM, TABLETS) [Suspect]
     Indication: CHRONIC OBSTRUCTIVE PULMONARY DISEASE
     Dosage: 500 MCG (500 MCG, 1 IN 1 D), ORAL
     Route: 048
     Dates: start: 20101211
  2. PREDNISOLONE [Concomitant]
  3. OXYGEN (OXYGEN) (OXYGEN) [Concomitant]
  4. ROFLUMILAST (ROFLUMILAST) (500 MICROGRAM, TABLETS) [Suspect]
     Indication: CHRONIC OBSTRUCTIVE PULMONARY DISEASE
     Dosage: 500 MCG (500 MCG, 1 IN 1 D), ORAL
     Route: 048
     Dates: start: 20111230, end: 20120113

REACTIONS (5)
  - BACK PAIN [None]
  - MYALGIA [None]
  - DEPRESSION [None]
  - SUICIDAL IDEATION [None]
  - ASTHENIA [None]
